FAERS Safety Report 5511660-6 (Version None)
Quarter: 2007Q4

REPORT INFORMATION
  Report Type: 
  Country: None (occurrence: None)
  Receive Date: 20071109
  Receipt Date: 20071031
  Transmission Date: 20080405
  Serious: Yes (Hospitalization, Other)
  Sender: FDA-Public Use
  Company Number: JP-GILEAD-E2B_00000016

PATIENT
  Age: 43 Year
  Sex: Male

DRUGS (2)
  1. HEPSERA [Suspect]
     Indication: HEPATIC CIRRHOSIS
     Dosage: 10MG PER DAY
     Route: 048
     Dates: start: 20070905, end: 20071021
  2. ZEFIX [Concomitant]
     Indication: HEPATIC CIRRHOSIS
     Route: 048

REACTIONS (1)
  - RENAL FAILURE ACUTE [None]
